FAERS Safety Report 15110687 (Version 4)
Quarter: 2018Q3

REPORT INFORMATION
  Report Type: Spontaneous
  Country: JP (occurrence: JP)
  Receive Date: 20180705
  Receipt Date: 20180809
  Transmission Date: 20181010
  Serious: Yes (Hospitalization, Other)
  Sender: FDA-Public Use
  Company Number: JP-SAKK-2018SA170696AA

PATIENT
  Age: 43 Year
  Sex: Male
  Weight: 67 kg

DRUGS (1)
  1. CEREZYME [Suspect]
     Active Substance: IMIGLUCERASE
     Indication: GAUCHER^S DISEASE
     Dosage: 4400 U, QD
     Route: 042
     Dates: start: 20180416, end: 20180623

REACTIONS (1)
  - Tongue neoplasm malignant stage unspecified [Unknown]

NARRATIVE: CASE EVENT DATE: 201806
